FAERS Safety Report 6037159-9 (Version None)
Quarter: 2009Q1

REPORT INFORMATION
  Report Type: 
  Country: None (occurrence: None)
  Receive Date: 20090114
  Receipt Date: 20090106
  Transmission Date: 20090719
  Serious: Yes (Hospitalization)
  Sender: FDA-Public Use
  Company Number: JP-MERCK-0812USA05035

PATIENT
  Age: 70 Year
  Sex: Female
  Weight: 43 kg

DRUGS (6)
  1. PEPCID RPD [Suspect]
     Route: 048
     Dates: start: 20081210, end: 20081212
  2. CEFZON [Suspect]
     Route: 048
     Dates: start: 20081210, end: 20081212
  3. PURSENNID [Concomitant]
     Route: 048
     Dates: start: 20081210
  4. ALOSENN [Concomitant]
     Route: 048
     Dates: start: 20081210
  5. SAIREI-TO [Concomitant]
     Route: 048
     Dates: start: 20081210, end: 20081219
  6. DIPHENHYDRAMINE HCL [Concomitant]
     Route: 061
     Dates: start: 20081215

REACTIONS (2)
  - PNEUMONIA [None]
  - RASH PRURITIC [None]
